FAERS Safety Report 9851230 (Version 2)
Quarter: 2014Q1

REPORT INFORMATION
  Report Type: Report from Study
  Country: DE (occurrence: DE)
  Receive Date: 20140128
  Receipt Date: 20140204
  Transmission Date: 20141002
  Serious: Yes (Hospitalization)
  Sender: FDA-Public Use
  Company Number: DE-EXELIXIS-XL18414003941

PATIENT
  Age: 77 Year
  Sex: Male
  Weight: 77 kg

DRUGS (10)
  1. XL184 [Suspect]
     Indication: PROSTATE CANCER
     Dosage: 60 MG, QD
     Route: 048
     Dates: start: 20130619
  2. XL184 [Suspect]
     Dosage: 20 MG, QD
     Route: 048
     Dates: end: 20140121
  3. XL184 [Suspect]
     Indication: PROSTATE CANCER
     Dosage: 5 MG, BID
     Route: 048
     Dates: start: 2013
  4. BLOPRESS [Concomitant]
  5. MAGNETRANS [Concomitant]
  6. OMEPRAZOL [Concomitant]
  7. XGEVA [Concomitant]
  8. TERMAGON [Concomitant]
  9. HCT [Concomitant]
  10. METOCLOPRAMID [Concomitant]

REACTIONS (2)
  - Cerebral ischaemia [Not Recovered/Not Resolved]
  - Blood creatinine increased [Not Recovered/Not Resolved]
